FAERS Safety Report 24529036 (Version 1)
Quarter: 2024Q4

REPORT INFORMATION
  Report Type: Spontaneous
  Country: ES (occurrence: ES)
  Receive Date: 20241021
  Receipt Date: 20241021
  Transmission Date: 20250114
  Serious: Yes (Other)
  Sender: CHEPLAPHARM
  Company Number: ES-ROCHE-2106392

PATIENT
  Age: 47 Year
  Sex: Female

DRUGS (6)
  1. VALGANCICLOVIR [Suspect]
     Active Substance: VALGANCICLOVIR
     Indication: Cytomegalovirus infection
     Dosage: TWICE DAILY?DAILY DOSE: 1800 MILLIGRAM
  2. GANCICLOVIR [Suspect]
     Active Substance: GANCICLOVIR
     Indication: Cytomegalovirus infection
     Dosage: HIGH DOSE/TWICE DAILY?DAILY DOSE: 15 MILLIGRAM/KG
  3. MYCOPHENOLATE MOFETIL [Suspect]
     Active Substance: MYCOPHENOLATE MOFETIL
     Indication: Prophylaxis against transplant rejection
  4. TACROLIMUS [Suspect]
     Active Substance: TACROLIMUS
     Indication: Prophylaxis against transplant rejection
  5. BASILIXIMAB [Suspect]
     Active Substance: BASILIXIMAB
     Indication: Prophylaxis against transplant rejection
     Dosage: INDUCTION THERAPY
  6. FOSCARNET [Suspect]
     Active Substance: FOSCARNET
     Dosage: 90-100 MG TWICE DAILY FOR 20 DAYS

REACTIONS (6)
  - Neutropenia [Unknown]
  - Leukopenia [Unknown]
  - Nephrogenic diabetes insipidus [Unknown]
  - Hypomagnesaemia [Unknown]
  - Drug resistance [Unknown]
  - Off label use [Unknown]
